FAERS Safety Report 6934417-8 (Version None)
Quarter: 2010Q3

REPORT INFORMATION
  Report Type: 
  Country: None (occurrence: None)
  Receive Date: 20100820
  Receipt Date: 20100811
  Transmission Date: 20110219
  Serious: Yes (Disabling)
  Sender: FDA-Public Use
  Company Number: B0649266A

PATIENT
  Sex: Male
  Weight: 53 kg

DRUGS (17)
  1. ZOVIRAX [Suspect]
     Indication: HERPES ZOSTER
     Dosage: 250MG PER DAY
     Route: 042
     Dates: start: 20100415, end: 20100415
  2. ZOVIRAX [Suspect]
     Dosage: 250MG PER DAY
     Route: 042
     Dates: start: 20100417, end: 20100417
  3. ARTIST [Concomitant]
     Route: 048
  4. RENAGEL [Concomitant]
     Route: 048
  5. CALCIUM CARBONATE [Concomitant]
     Route: 048
  6. THYRADIN [Concomitant]
     Route: 048
  7. UNKNOWN MEDICATION [Concomitant]
     Route: 048
  8. ANCORON [Concomitant]
     Route: 048
  9. ACARDI [Concomitant]
     Route: 048
  10. GAMOFA [Concomitant]
     Route: 048
  11. KINEDAK [Concomitant]
     Route: 048
  12. AMOBAN [Concomitant]
     Route: 048
  13. WARFARIN [Concomitant]
     Route: 048
  14. CINAL [Concomitant]
     Route: 048
  15. METHYCOBAL [Concomitant]
     Route: 048
  16. NAUZELIN [Concomitant]
     Route: 048
  17. ALLOID G [Concomitant]
     Route: 048

REACTIONS (7)
  - ABNORMAL BEHAVIOUR [None]
  - DECREASED APPETITE [None]
  - DELIRIUM [None]
  - MEMORY IMPAIRMENT [None]
  - PSYCHIATRIC SYMPTOM [None]
  - REFUSAL OF TREATMENT BY PATIENT [None]
  - SUICIDAL IDEATION [None]
